FAERS Safety Report 6538740-0 (Version None)
Quarter: 2010Q1

REPORT INFORMATION
  Report Type: 
  Country: None (occurrence: None)
  Receive Date: 20100114
  Receipt Date: 20100114
  Transmission Date: 20100710
  Serious: Yes (Death)
  Sender: FDA-Public Use
  Company Number: None

PATIENT
  Age: 72 Year
  Sex: Female
  Weight: 95.9 kg

DRUGS (8)
  1. ZYVOX [Suspect]
     Indication: PNEUMONIA
     Dosage: 600 MG Q12H IV
     Route: 042
     Dates: start: 20091213, end: 20091219
  2. VANCOMYCIN [Concomitant]
  3. PIPERACILLIN AND TAZOBACTAM [Concomitant]
  4. LEVOFLOXACIN [Concomitant]
  5. FLUCONAZOLE [Concomitant]
  6. METRONIDAZOLE [Concomitant]
  7. ENOXAPARIN SODIUM [Concomitant]
  8. WASRFARIN [Concomitant]

REACTIONS (1)
  - PANCYTOPENIA [None]
